FAERS Safety Report 4942955-2 (Version None)
Quarter: 2006Q1

REPORT INFORMATION
  Report Type: 
  Country: None (occurrence: None)
  Receive Date: 20060314
  Receipt Date: 20051013
  Transmission Date: 20060701
  Serious: Yes (Hospitalization, Disabling, Other)
  Sender: FDA-Public Use
  Company Number: US-AMGEN-US154391

PATIENT
  Age: 25 Year
  Sex: Female

DRUGS (1)
  1. ENBREL [Suspect]
     Indication: ERYTHRODERMIC PSORIASIS
     Dates: start: 20040101

REACTIONS (11)
  - ANGER [None]
  - BRONCHITIS [None]
  - CONDITION AGGRAVATED [None]
  - CYTOMEGALOVIRUS INFECTION [None]
  - ERYTHRODERMIC PSORIASIS [None]
  - FRUSTRATION [None]
  - HYPOAESTHESIA [None]
  - LEIOMYOSARCOMA [None]
  - MONONUCLEOSIS SYNDROME [None]
  - PNEUMOCYSTIS JIROVECI PNEUMONIA [None]
  - STRESS [None]
